FAERS Safety Report 5089437-8 (Version None)
Quarter: 2006Q3

REPORT INFORMATION
  Report Type: 
  Country: None (occurrence: None)
  Receive Date: 20060822
  Receipt Date: 20060807
  Transmission Date: 20061208
  Serious: Yes (Other)
  Sender: FDA-Public Use
  Company Number: ENTC2006-0150

PATIENT
  Age: 78 Year
  Sex: Male

DRUGS (9)
  1. STALEVO 100 [Suspect]
     Indication: BLOOD PRESSURE INCREASED
     Dosage: SEE IMAGE
     Route: 048
     Dates: end: 20060601
  2. STALEVO 100 [Suspect]
     Indication: CATECHOLAMINES URINE INCREASED
     Dosage: SEE IMAGE
     Route: 048
     Dates: end: 20060601
  3. STALEVO 100 [Suspect]
     Indication: PARKINSON'S DISEASE
     Dosage: SEE IMAGE
     Route: 048
     Dates: end: 20060601
  4. EXELON [Suspect]
     Indication: BLOOD PRESSURE INCREASED
     Dosage: 9 MG ORAL
     Route: 048
  5. EXELON [Suspect]
     Indication: CATECHOLAMINES URINE INCREASED
     Dosage: 9 MG ORAL
     Route: 048
  6. EXELON [Suspect]
     Indication: PARKINSON'S DISEASE
     Dosage: 9 MG ORAL
     Route: 048
  7. REQUIP [Suspect]
     Indication: BLOOD PRESSURE INCREASED
     Dosage: 6 MG (2 MG, 3 IN 1 D) ORAL
     Route: 048
  8. REQUIP [Suspect]
     Indication: CATECHOLAMINES URINE INCREASED
     Dosage: 6 MG (2 MG, 3 IN 1 D) ORAL
     Route: 048
  9. REQUIP [Suspect]
     Indication: PARKINSON'S DISEASE
     Dosage: 6 MG (2 MG, 3 IN 1 D) ORAL
     Route: 048

REACTIONS (3)
  - CATECHOLAMINES URINE INCREASED [None]
  - HYPERTENSION [None]
  - PHAEOCHROMOCYTOMA [None]
